FAERS Safety Report 10066281 (Version 1)
Quarter: 2014Q2

REPORT INFORMATION
  Report Type: Report from Study
  Country: GB (occurrence: GB)
  Receive Date: 20140408
  Receipt Date: 20140408
  Transmission Date: 20141212
  Serious: Yes (Hospitalization, Other)
  Sender: FDA-Public Use
  Company Number: GB-AMGEN INC.-GBRCT2014024515

PATIENT
  Age: 13 Year
  Sex: Female
  Weight: 43 kg

DRUGS (4)
  1. ETANERCEPT [Suspect]
     Indication: PRODUCT USED FOR UNKNOWN INDICATION
     Dosage: 20 MG, QWK
     Route: 065
     Dates: start: 20070701, end: 20071101
  2. IBUPROFEN [Concomitant]
     Dosage: UNK
     Dates: start: 200702
  3. DICLOFENAC [Concomitant]
     Dosage: UNK
     Dates: start: 200704
  4. OMEPRAZOLE [Concomitant]
     Dosage: UNK
     Dates: start: 200704

REACTIONS (2)
  - Myositis [Unknown]
  - Panniculitis [Unknown]
